FAERS Safety Report 24029050 (Version 1)
Quarter: 2024Q2

REPORT INFORMATION
  Report Type: Spontaneous
  Country: US (occurrence: None)
  Receive Date: 20240627
  Receipt Date: 20240627
  Transmission Date: 20240716
  Serious: Yes (Hospitalization)
  Sender: FDA-Public Use
  Company Number: None

PATIENT
  Age: 29 Year
  Sex: Female

DRUGS (1)
  1. ZEPBOUND [Suspect]
     Active Substance: TIRZEPATIDE

REACTIONS (3)
  - Nausea [None]
  - Diarrhoea [None]
  - Dehydration [None]

NARRATIVE: CASE EVENT DATE: 20240625
